FAERS Safety Report 6195600-5 (Version None)
Quarter: 2009Q2

REPORT INFORMATION
  Report Type: 
  Country: None (occurrence: None)
  Receive Date: 20090519
  Receipt Date: 20090507
  Transmission Date: 20091009
  Serious: Yes (Hospitalization)
  Sender: FDA-Public Use
  Company Number: NL-PFIZER INC-2009213851

PATIENT
  Age: 33 Year

DRUGS (3)
  1. XANAX [Suspect]
     Indication: HYPERVENTILATION
     Route: 048
     Dates: start: 20090503
  2. DICLOFENAC [Concomitant]
     Dates: start: 20090503, end: 20090503
  3. IBUPROFEN [Concomitant]
     Route: 048
     Dates: start: 20090503, end: 20090503

REACTIONS (6)
  - DIZZINESS [None]
  - MIGRAINE [None]
  - PALPITATIONS [None]
  - PARAESTHESIA [None]
  - PERIPHERAL COLDNESS [None]
  - PRESYNCOPE [None]
